FAERS Safety Report 15563665 (Version 1)
Quarter: 2018Q4

REPORT INFORMATION
  Report Type: Spontaneous
  Country: GB (occurrence: GB)
  Receive Date: 20181029
  Receipt Date: 20181029
  Transmission Date: 20190205
  Serious: Yes (Other)
  Sender: FDA-Public Use
  Company Number: GB-TEVA-2018-GB-969652

PATIENT
  Age: 42 Year
  Sex: Male
  Weight: 76 kg

DRUGS (5)
  1. FLUOXETINE [Concomitant]
     Active Substance: FLUOXETINE HYDROCHLORIDE
     Dates: start: 20180911, end: 20180912
  2. TERBINAFINE. [Concomitant]
     Active Substance: TERBINAFINE
     Dosage: 2 DOSAGE FORMS DAILY; THINLY AS DIRECTED.
     Dates: start: 20180705, end: 20180817
  3. PROPRANOLOL [Concomitant]
     Active Substance: PROPRANOLOL HYDROCHLORIDE
     Dosage: 2 DOSAGE FORMS DAILY; IN THE MORNING.
     Dates: start: 20180911, end: 20180912
  4. PAROXETINE. [Suspect]
     Active Substance: PAROXETINE
     Route: 065
  5. THIAMINE. [Concomitant]
     Active Substance: THIAMINE
     Dosage: 1 DOSAGE FORMS DAILY; IN THE MORNING
     Dates: start: 20180911, end: 20180912

REACTIONS (2)
  - Gastrointestinal disorder [Recovered/Resolved]
  - Hypersensitivity [Unknown]
